FAERS Safety Report 19803896 (Version 4)
Quarter: 2021Q4

REPORT INFORMATION
  Report Type: Spontaneous
  Country: US (occurrence: US)
  Receive Date: 20210908
  Receipt Date: 20211014
  Transmission Date: 20220303
  Serious: Yes (Other)
  Sender: FDA-Public Use
  Company Number: US-PFIZER INC-202101111944

PATIENT
  Age: 60 Year
  Sex: Female
  Weight: 90.72 kg

DRUGS (1)
  1. DETROL LA [Suspect]
     Active Substance: TOLTERODINE TARTRATE
     Indication: Urinary incontinence
     Dosage: 4 MG, 1X/DAY

REACTIONS (4)
  - Breast cancer [Unknown]
  - COVID-19 [Unknown]
  - Hypertonic bladder [Unknown]
  - Irritability [Unknown]

NARRATIVE: CASE EVENT DATE: 20160501
